FAERS Safety Report 4709866-9 (Version None)
Quarter: 2005Q3

REPORT INFORMATION
  Report Type: 
  Country: None (occurrence: None)
  Receive Date: 20050708
  Receipt Date: 20050623
  Transmission Date: 20060218
  Serious: Yes (Other)
  Sender: FDA-Public Use
  Company Number: US-GLAXOSMITHKLINE-A0564097A

PATIENT
  Age: 47 Year
  Sex: Male
  Weight: 109.1 kg

DRUGS (2)
  1. NICODERM CQ [Suspect]
     Indication: SMOKING CESSATION THERAPY
     Route: 062
     Dates: start: 20050621
  2. EFFEXOR [Concomitant]
     Indication: PROPHYLAXIS
     Route: 048
     Dates: start: 20050621

REACTIONS (3)
  - FALL [None]
  - FEELING ABNORMAL [None]
  - LOSS OF CONSCIOUSNESS [None]
